FAERS Safety Report 4727492-2 (Version None)
Quarter: 2005Q3

REPORT INFORMATION
  Report Type: 
  Country: None (occurrence: None)
  Receive Date: 20050727
  Receipt Date: 20050727
  Transmission Date: 20060218
  Serious: Yes (Death, Life-Threatening)
  Sender: FDA-Public Use
  Company Number: None

PATIENT
  Age: 83 Year
  Sex: Male
  Weight: 101 kg

DRUGS (9)
  1. ULTRAVIST [Suspect]
     Indication: CATHETERISATION CARDIAC
     Dosage: 575ML
     Dates: start: 20050606, end: 20050606
  2. ACETYLCYSTEINE [Concomitant]
  3. ASPIRIN [Concomitant]
  4. METOPROLOL [Concomitant]
  5. PLAVIX [Concomitant]
  6. NITROGLYCERIN [Concomitant]
  7. SIMVASTATIN [Concomitant]
  8. PREDNISONE [Concomitant]
  9. GOSERELIN [Concomitant]

REACTIONS (11)
  - CULTURE URINE POSITIVE [None]
  - HAEMODIALYSIS [None]
  - HYPERHIDROSIS [None]
  - HYPOTENSION [None]
  - LETHARGY [None]
  - MYOCARDIAL INFARCTION [None]
  - PROCEDURAL COMPLICATION [None]
  - RENAL TUBULAR NECROSIS [None]
  - STAPHYLOCOCCAL INFECTION [None]
  - URINE OUTPUT DECREASED [None]
  - VENTRICULAR TACHYCARDIA [None]
